FAERS Safety Report 23201216 (Version 1)
Quarter: 2023Q4

REPORT INFORMATION
  Report Type: Spontaneous
  Country: NL (occurrence: NL)
  Receive Date: 20231118
  Receipt Date: 20231118
  Transmission Date: 20240110
  Serious: Yes (Hospitalization)
  Sender: FDA-Public Use
  Company Number: None

PATIENT
  Age: 85 Year
  Sex: Female
  Weight: 72.5 kg

DRUGS (13)
  1. HYDROCHLOROTHIAZIDE [Suspect]
     Active Substance: HYDROCHLOROTHIAZIDE
     Indication: Hypertension
     Dosage: 1DD1T , HYDROCHLOROTHIAZIDE TABLET 12.5MG / BRAND NAME NOT SPECIFIED
     Dates: start: 20200101, end: 20231017
  2. CALCIUM CARB/COLECALC [Concomitant]
     Indication: Product used for unknown indication
     Dosage: CHEWABLE TABLET, 1.25 G (GRAM)/800 UNITS , CALCIUM CARB/COLECALC CHEWABLE TB 1.25G/800IE (500MG CA)
  3. METOPROLOL [Concomitant]
     Active Substance: METOPROLOL
     Indication: Product used for unknown indication
     Dosage: MODIFIED-RELEASE TABLET, 100 MG (MILLIGRAM) , METOPROLOL TABLET MGA 100MG (SUCCINATE) / BRAND NAME N
  4. METFORMIN [Concomitant]
     Active Substance: METFORMIN HYDROCHLORIDE
     Indication: Product used for unknown indication
     Dosage: TABLET, 500 MG (MILLIGRAM) , METFORMIN TABLET 500MG / BRAND NAME NOT SPECIFIED
  5. TOLTERODINE [Concomitant]
     Active Substance: TOLTERODINE
     Indication: Product used for unknown indication
     Dosage: MODIFIED-RELEASE CAPSULE, 4 MG (MILLIGRAM) , TOLTERODINE CAPSULE MGA 4MG / BRAND NAME NOT SPECIFIED
  6. ASPIRIN [Concomitant]
     Active Substance: ASPIRIN
     Indication: Product used for unknown indication
     Dosage: TABLET, 80 MG (MILLIGRAM) , ACETYLSALICYLIC ACID TABLET 80MG / BRAND NAME NOT SPECIFIED
  7. ESOMEPRAZOLE [Concomitant]
     Active Substance: ESOMEPRAZOLE
     Indication: Product used for unknown indication
     Dosage: GASTRO-RESISTANT CAPSULE, 20 MG (MILLIGRAM) , ESOMEPRAZOL CAPSULE MSR 20MG / BRAND NAME NOT SPECIFIE
  8. SIMVASTATIN [Concomitant]
     Active Substance: SIMVASTATIN
     Indication: Product used for unknown indication
     Dosage: FILM-COATED TABLET, 40 MG (MILLIGRAM) , SIMVASTATINE TABLET FO 40MG / BRAND NAME NOT SPECIFIED
  9. TIOTROPIUM [Concomitant]
     Active Substance: TIOTROPIUM
     Indication: Product used for unknown indication
     Dosage: INHALATION POWDER, 18 UG (MICROGRAM), TIOTROPIUM INHALATION CAPSULE 18UG / BRAND NAME NOT SPECIFIED
  10. LISINOPRIL [Concomitant]
     Active Substance: LISINOPRIL
     Indication: Product used for unknown indication
     Dosage: TABLET, 20 MG (MILLIGRAM) , LISINOPRIL TABLET 20MG / BRAND NAME NOT SPECIFIED
  11. POLYETHYLENE GLYCOLS [Concomitant]
     Active Substance: POLYETHYLENE GLYCOLS
     Indication: Product used for unknown indication
     Dosage: POWDER FOR ORAL SOLUTION, 10 G (GRAMS) , MACROGOL POWDER V DRINK 10G / BRAND NAME NOT SPECIFIED
  12. COSMETICS [Concomitant]
     Active Substance: COSMETICS
     Indication: Product used for unknown indication
     Dosage: CREAM , CETOMACROGOL CREAM WITH VASELINE / BRAND NAME NOT SPECIFIED
  13. BECLOMETHASONE\FORMOTEROL [Concomitant]
     Active Substance: BECLOMETHASONE\FORMOTEROL
     Indication: Product used for unknown indication
     Dosage: AEROSOL, 200/6 UG/DOSE (MICROGRAMS PER DOSE), BECLOMETASON/FORMOTEROL AEROSOL 200/6UG/DO / BRAND NAM

REACTIONS (1)
  - Hyponatraemia [Recovered/Resolved]
